FAERS Safety Report 7228310-3 (Version None)
Quarter: 2011Q1

REPORT INFORMATION
  Report Type: 
  Country: None (occurrence: None)
  Receive Date: 20110114
  Receipt Date: 20110106
  Transmission Date: 20110831
  Serious: Yes (Death)
  Sender: FDA-Public Use
  Company Number: US-B.I. PHARMACEUTICALS,INC./RIDGEFIELD-2011-DE-00350GD

PATIENT
  Age: 56 Year
  Sex: Female

DRUGS (10)
  1. PROMETHAZINE [Suspect]
     Route: 048
  2. VENLAFAXINE [Suspect]
     Route: 048
  3. OXYCODONE [Suspect]
     Route: 048
  4. CLONAZEPAM [Suspect]
     Route: 048
  5. MELOXICAM [Suspect]
     Route: 048
  6. TRAMADOL [Suspect]
     Route: 048
  7. METFORMIN HCL [Suspect]
     Route: 048
  8. SIMVASTATIN [Suspect]
     Route: 048
  9. OXYCONTIN [Suspect]
     Route: 048
  10. LISINOPRIL [Suspect]
     Route: 048

REACTIONS (1)
  - DEATH [None]
